FAERS Safety Report 8104489-6 (Version None)
Quarter: 2012Q1

REPORT INFORMATION
  Report Type: 
  Country: None (occurrence: None)
  Receive Date: 20120130
  Receipt Date: 20120130
  Transmission Date: 20120608
  Serious: Yes (Death, Hospitalization, Other)
  Sender: FDA-Public Use
  Company Number: ES-JNJFOC-20090905199

PATIENT
  Age: 73 Year
  Sex: Male
  Weight: 80 kg

DRUGS (8)
  1. REMICADE [Suspect]
     Dosage: 3RD DOSE
     Route: 042
     Dates: start: 20090101
  2. REMICADE [Suspect]
     Route: 042
     Dates: start: 20090201
  3. REMICADE [Suspect]
     Indication: CROHN'S DISEASE
     Route: 042
     Dates: start: 20090201
  4. REMICADE [Suspect]
     Indication: COLITIS ULCERATIVE
     Dosage: RECEIVED 4 INFUSIONS
     Route: 042
     Dates: start: 20081124
  5. PREDNISONE TAB [Concomitant]
     Indication: COLITIS ULCERATIVE
     Dates: start: 20070801, end: 20081101
  6. REMICADE [Suspect]
     Dosage: 3RD DOSE
     Route: 042
     Dates: start: 20090101
  7. REMICADE [Suspect]
     Dosage: RECEIVED 4 INFUSIONS
     Route: 042
     Dates: start: 20081124
  8. AZATHIOPRINE [Suspect]
     Indication: COLITIS ULCERATIVE
     Dates: start: 20050101, end: 20090201

REACTIONS (3)
  - DEATH [None]
  - COLITIS ULCERATIVE [None]
  - HODGKIN'S DISEASE STAGE IV [None]
